FAERS Safety Report 14186041 (Version 1)
Quarter: 2017Q4

REPORT INFORMATION
  Report Type: Spontaneous
  Country: JP (occurrence: JP)
  Receive Date: 20171114
  Receipt Date: 20171114
  Transmission Date: 20180321
  Serious: Yes (Hospitalization)
  Sender: FDA-Public Use
  Company Number: JP-BAYER-2017-214428

PATIENT
  Sex: Male

DRUGS (4)
  1. STIVARGA [Suspect]
     Active Substance: REGORAFENIB
     Indication: HEPATOCELLULAR CARCINOMA
     Dosage: 2CYCLE 2ND WEEK ,DAILY DOSE 120 MG
     Route: 048
  2. STIVARGA [Suspect]
     Active Substance: REGORAFENIB
     Indication: HEPATOCELLULAR CARCINOMA
     Dosage: DAILY DOSE 160 MG
     Route: 048
  3. STIVARGA [Suspect]
     Active Substance: REGORAFENIB
     Indication: HEPATOCELLULAR CARCINOMA
     Dosage: 3CYCLE 2ND WEEK
     Route: 048
  4. STIVARGA [Suspect]
     Active Substance: REGORAFENIB
     Indication: HEPATOCELLULAR CARCINOMA
     Dosage: 1CYCLE 2ND WEEK , DAILY DOSE 80 MG
     Route: 048

REACTIONS (12)
  - Dehydration [None]
  - Palmar-plantar erythrodysaesthesia syndrome [Recovered/Resolved]
  - Liver disorder [None]
  - Diarrhoea [Recovered/Resolved]
  - Decreased appetite [None]
  - Diarrhoea [None]
  - Pyrexia [Recovered/Resolved]
  - Blood phosphorus decreased [Recovered/Resolved]
  - Abdominal pain upper [None]
  - Pyrexia [None]
  - Malaise [None]
  - Back pain [None]
